FAERS Safety Report 6565796-1 (Version None)
Quarter: 2010Q1

REPORT INFORMATION
  Report Type: 
  Country: None (occurrence: None)
  Receive Date: 20100201
  Receipt Date: 20091124
  Transmission Date: 20100710
  Serious: No
  Sender: FDA-Public Use
  Company Number: US-ABBOTT-09P-163-0611368-00

PATIENT
  Age: 74 Year
  Sex: Male
  Weight: 68.1 kg

DRUGS (7)
  1. LUPRON DEPOT [Suspect]
     Indication: PROSTATIC SPECIFIC ANTIGEN INCREASED
     Dates: start: 20090610, end: 20090710
  2. LUPRON DEPOT [Suspect]
     Dates: start: 20090710, end: 20090710
  3. LUPRON DEPOT [Suspect]
     Dates: end: 20090714
  4. TOPROL-XL [Concomitant]
     Indication: HYPERTENSION
  5. DIGOXIN [Concomitant]
     Indication: ATRIAL FIBRILLATION
  6. FLECAINIDE ACETATE [Concomitant]
     Indication: ATRIAL FIBRILLATION
  7. SIMVASTATIN [Concomitant]
     Indication: BLOOD CHOLESTEROL INCREASED

REACTIONS (6)
  - ARTHRALGIA [None]
  - ASTHENIA [None]
  - DYSGEUSIA [None]
  - HOT FLUSH [None]
  - SALIVARY HYPERSECRETION [None]
  - WEIGHT DECREASED [None]
